FAERS Safety Report 9354676 (Version 2)
Quarter: 2013Q2

REPORT INFORMATION
  Report Type: Spontaneous
  Country: CN (occurrence: CN)
  Receive Date: 20130619
  Receipt Date: 20130626
  Transmission Date: 20140414
  Serious: Yes (Other)
  Sender: FDA-Public Use
  Company Number: CN-009507513-1306CHN006600

PATIENT
  Age: 83 Year
  Sex: Female
  Weight: 50 kg

DRUGS (1)
  1. TIENAM [Suspect]
     Indication: PNEUMONIA
     Dosage: 0.5 G, TID
     Route: 041
     Dates: start: 20120101, end: 20120110

REACTIONS (1)
  - Renal injury [Recovering/Resolving]
